FAERS Safety Report 14430410 (Version 2)
Quarter: 2018Q1

REPORT INFORMATION
  Report Type: Other
  Country: ES (occurrence: ES)
  Receive Date: 20180124
  Receipt Date: 20180306
  Transmission Date: 20180509
  Serious: Yes (Hospitalization, Other)
  Sender: FDA-Public Use
  Company Number: ES-MACLEODS PHARMACEUTICALS US LTD-MAC2017007836

PATIENT

DRUGS (1)
  1. OLMESARTAN 40MG FILM?COATED TABLETS [Suspect]
     Active Substance: OLMESARTAN
     Indication: HYPERTENSION
     Dosage: 40 MG, UNK
     Route: 048

REACTIONS (6)
  - Diarrhoea [Unknown]
  - Metabolic acidosis [Unknown]
  - Abdominal pain [Recovering/Resolving]
  - Sprue-like enteropathy [Recovering/Resolving]
  - Weight decreased [Unknown]
  - Renal failure [Recovering/Resolving]

NARRATIVE: CASE EVENT DATE: 2014
